FAERS Safety Report 15103011 (Version 1)
Quarter: 2018Q3

REPORT INFORMATION
  Report Type: Spontaneous
  Country: BR (occurrence: BR)
  Receive Date: 20180703
  Receipt Date: 20180703
  Transmission Date: 20181010
  Serious: Yes (Other)
  Sender: FDA-Public Use
  Company Number: PHHY2018BR023253

PATIENT
  Sex: Male
  Weight: 19 kg

DRUGS (4)
  1. RITALINA [Suspect]
     Active Substance: METHYLPHENIDATE HYDROCHLORIDE
     Indication: NIEMANN-PICK DISEASE
  2. MIGLUSTAT. [Concomitant]
     Active Substance: MIGLUSTAT
     Indication: NIEMANN-PICK DISEASE
  3. MIGLUSTAT. [Concomitant]
     Active Substance: MIGLUSTAT
     Indication: CATAPLEXY
     Dosage: 4 DF, QD (2 IN THE MORNING AND 2 IN THE NIGHT)
     Route: 048
     Dates: start: 2013
  4. RITALINA [Suspect]
     Active Substance: METHYLPHENIDATE HYDROCHLORIDE
     Indication: CATAPLEXY
     Dosage: 1 DF, QD
     Route: 048

REACTIONS (3)
  - Product use in unapproved indication [Unknown]
  - Seizure [Recovering/Resolving]
  - Drug dependence [Recovering/Resolving]
